FAERS Safety Report 23869446 (Version 1)
Quarter: 2024Q2

REPORT INFORMATION
  Report Type: Spontaneous
  Country: CN (occurrence: CN)
  Receive Date: 20240517
  Receipt Date: 20240517
  Transmission Date: 20240715
  Serious: Yes (Hospitalization, Other)
  Sender: FDA-Public Use
  Company Number: CN-002147023-NVSC2024CN104636

PATIENT
  Age: 38 Year
  Sex: Male
  Weight: 73 kg

DRUGS (4)
  1. DICLOFENAC SODIUM [Suspect]
     Active Substance: DICLOFENAC\DICLOFENAC SODIUM
     Indication: Pain
     Dosage: 25 MG, TID
     Route: 048
     Dates: start: 20240415, end: 20240422
  2. IBUPROFEN [Suspect]
     Active Substance: IBUPROFEN
     Indication: Pain
     Dosage: 0.3 G, BID 2/DAYS SUSTAINED-RELEASE CAPSULES
     Route: 048
     Dates: start: 20240415, end: 20240422
  3. COLCHICINE [Suspect]
     Active Substance: COLCHICINE
     Indication: Gout
     Dosage: 0.5 MG, BID
     Route: 048
     Dates: start: 20240415, end: 20240422
  4. COLCHICINE [Suspect]
     Active Substance: COLCHICINE
     Indication: Pain

REACTIONS (13)
  - Haematochezia [Recovered/Resolved]
  - Gastrointestinal haemorrhage [Recovered/Resolved]
  - Faeces discoloured [Recovered/Resolved]
  - Gastric ulcer [Recovered/Resolved]
  - Pallor [Recovered/Resolved]
  - Vomiting [Recovered/Resolved]
  - Dizziness [Recovered/Resolved]
  - Tenderness [Recovered/Resolved]
  - Fatigue [Recovered/Resolved]
  - Syncope [Recovered/Resolved]
  - Haemoglobin decreased [Recovered/Resolved]
  - Hypotension [Recovered/Resolved]
  - Drug effect less than expected [Unknown]

NARRATIVE: CASE EVENT DATE: 20240401
